FAERS Safety Report 8305314-0 (Version None)
Quarter: 2012Q2

REPORT INFORMATION
  Report Type: 
  Country: None (occurrence: None)
  Receive Date: 20120423
  Receipt Date: 20120411
  Transmission Date: 20120825
  Serious: Yes (Death, Hospitalization, Other)
  Sender: FDA-Public Use
  Company Number: GB-TEVA-327381ISR

PATIENT
  Age: 71 Year
  Sex: Male
  Weight: 79.4 kg

DRUGS (4)
  1. TRABECTEDIN [Suspect]
     Dosage: CYCLE TWO, 2280 UG
     Route: 042
     Dates: start: 20120126, end: 20120127
  2. WARFARIN SODIUM [Suspect]
     Indication: ATRIAL FIBRILLATION
     Dosage: DOSAGE FORM: UNSPECIFIED
     Route: 065
  3. TRABECTEDIN [Suspect]
     Indication: LIPOSARCOMA
     Dosage: CYCLE ONE, 2280 UG
     Route: 042
     Dates: start: 20120105, end: 20120106
  4. CORTICOSTEROIDS [Concomitant]
     Indication: PREMEDICATION
     Dosage: DOSAGE FORM: UNSPECIFIED
     Route: 065

REACTIONS (8)
  - PANCYTOPENIA [None]
  - HEPATIC ENZYME INCREASED [None]
  - MULTI-ORGAN FAILURE [None]
  - PULMONARY OEDEMA [None]
  - DEATH [None]
  - SARCOMA [None]
  - GASTROINTESTINAL HAEMORRHAGE [None]
  - NEUTROPENIC SEPSIS [None]
